FAERS Safety Report 10214888 (Version 1)
Quarter: 2014Q2

REPORT INFORMATION
  Report Type: Spontaneous
  Country: US (occurrence: US)
  Receive Date: 20140603
  Receipt Date: 20140603
  Transmission Date: 20141212
  Serious: No
  Sender: FDA-Public Use
  Company Number: US-PFIZER INC-2014148231

PATIENT
  Age: 51 Year
  Sex: Female
  Weight: 58.96 kg

DRUGS (2)
  1. DEPO-PROVERA [Suspect]
     Indication: CONTRACEPTION
     Dosage: UNK
     Dates: start: 20140120
  2. GABAPENTIN [Concomitant]
     Dosage: UNK

REACTIONS (1)
  - Metrorrhagia [Not Recovered/Not Resolved]
